FAERS Safety Report 10211599 (Version 2)
Quarter: 2014Q3

REPORT INFORMATION
  Report Type: Spontaneous
  Country: US (occurrence: US)
  Receive Date: 20140602
  Receipt Date: 20140702
  Transmission Date: 20150326
  Serious: No
  Sender: FDA-Public Use
  Company Number: US-SUCAMPO PHARMA AMERICAS, INC-SPI201400389

PATIENT
  Age: 25 Year
  Sex: Female
  Weight: 64 kg

DRUGS (6)
  1. AMITIZA [Suspect]
     Active Substance: LUBIPROSTONE
     Indication: CONSTIPATION
     Dosage: 24 MCG, BID SAMPLES
     Route: 048
     Dates: start: 20140508, end: 20140523
  2. TRINESSA (28) [Concomitant]
     Indication: CONTRACEPTION
     Dosage: 0.18/0.215/0.25 MG - 35 MCG TABS
  3. TYLENOL [Concomitant]
     Active Substance: ACETAMINOPHEN
  4. FIBER [Concomitant]
     Active Substance: PSYLLIUM HUSK
  5. PROBIOTIC [Concomitant]
     Active Substance: PROBIOTICS NOS
  6. CYMBALTA [Concomitant]
     Active Substance: DULOXETINE HYDROCHLORIDE

REACTIONS (4)
  - Tremor [Recovered/Resolved]
  - Chest discomfort [Recovered/Resolved]
  - Hot flush [Recovered/Resolved]
  - Dyspnoea [Recovered/Resolved]

NARRATIVE: CASE EVENT DATE: 20140521
